FAERS Safety Report 26179788 (Version 1)
Quarter: 2025Q4

REPORT INFORMATION
  Report Type: Spontaneous
  Country: CN (occurrence: CN)
  Receive Date: 20251219
  Receipt Date: 20251219
  Transmission Date: 20260117
  Serious: Yes (Life-Threatening, Other)
  Sender: BAYER HEALTHCARE PHARMACEUTICALS INC.
  Company Number: CN-BAYER-2025A166818

PATIENT
  Age: 60 Year
  Sex: Male
  Weight: 52 kg

DRUGS (2)
  1. ULTRAVIST [Suspect]
     Active Substance: IOPROMIDE
     Indication: Aortogram
     Dosage: 80 ML, ONCE, DISSOLVED IN 0.9% NORMAL SALINE 20ML
     Route: 042
     Dates: start: 20251213, end: 20251213
  2. ULTRAVIST [Suspect]
     Active Substance: IOPROMIDE
     Indication: Aortic dissection

REACTIONS (10)
  - Anaphylactic shock [Recovering/Resolving]
  - Cyanosis [Recovered/Resolved]
  - Tachypnoea [Recovered/Resolved]
  - Unresponsive to stimuli [Recovered/Resolved]
  - Blood pressure decreased [Recovering/Resolving]
  - Heart rate increased [Not Recovered/Not Resolved]
  - Respiratory rate increased [Recovering/Resolving]
  - Oxygen saturation decreased [Recovered/Resolved]
  - Dysarthria [Recovered/Resolved]
  - Chest discomfort [Recovered/Resolved]

NARRATIVE: CASE EVENT DATE: 20251213
